FAERS Safety Report 6781706-6 (Version None)
Quarter: 2010Q2

REPORT INFORMATION
  Report Type: 
  Country: None (occurrence: None)
  Receive Date: 20100617
  Receipt Date: 20100617
  Transmission Date: 20101027
  Serious: Yes (Life-Threatening)
  Sender: FDA-Public Use
  Company Number: None

PATIENT
  Age: 53 Year
  Sex: Female
  Weight: 70.3075 kg

DRUGS (1)
  1. MAXALT [Suspect]
     Indication: MIGRAINE

REACTIONS (2)
  - MYOCARDIAL INFARCTION [None]
  - VASOSPASM [None]
